FAERS Safety Report 19767076 (Version 1)
Quarter: 2021Q3

REPORT INFORMATION
  Report Type: Spontaneous
  Country: US (occurrence: US)
  Receive Date: 20210830
  Receipt Date: 20210830
  Transmission Date: 20211014
  Serious: Yes (Hospitalization)
  Sender: FDA-Public Use
  Company Number: None

PATIENT
  Age: 5 Year
  Sex: Female
  Weight: 17.9 kg

DRUGS (1)
  1. PHENOBARBITAL 20 MG/5 ML SOLN [Suspect]
     Active Substance: PHENOBARBITAL
     Indication: EPILEPSY
     Dosage: ?          QUANTITY:1 TABLESPOON(S);OTHER ROUTE:GTUBE?
     Dates: start: 20210810, end: 20210820

REACTIONS (2)
  - Seizure [None]
  - Product substitution issue [None]

NARRATIVE: CASE EVENT DATE: 20210817
